FAERS Safety Report 10008473 (Version 2)
Quarter: 2014Q2

REPORT INFORMATION
  Report Type: Spontaneous
  Country: IT (occurrence: IT)
  Receive Date: 20140313
  Receipt Date: 20140416
  Transmission Date: 20141212
  Serious: Yes (Hospitalization)
  Sender: FDA-Public Use
  Company Number: IT-009507513-1403ITA002102

PATIENT
  Age: 47 Year
  Sex: Male

DRUGS (5)
  1. ROCURONIUM BROMIDE [Suspect]
     Indication: INDUCTION OF ANAESTHESIA
     Dosage: 40 MG, TOTAL
     Route: 042
     Dates: start: 20131209, end: 20131209
  2. EN [Concomitant]
     Route: 048
  3. FENTANEST [Concomitant]
  4. PRAMIPEXOLE DICHLORHYDRATE MONOHYDRATE [Concomitant]
  5. PROPOFOL [Concomitant]
     Dosage: UNK

REACTIONS (4)
  - Epiglottic oedema [Recovered/Resolved]
  - Face oedema [Recovered/Resolved]
  - Tongue oedema [Recovered/Resolved]
  - Rash [Recovered/Resolved]
